FAERS Safety Report 9842595 (Version 2)
Quarter: 2015Q3

REPORT INFORMATION
  Report Type: Spontaneous
  Country: US (occurrence: US)
  Receive Date: 20140124
  Receipt Date: 20150730
  Transmission Date: 20151125
  Serious: No
  Sender: FDA-Public Use
  Company Number: US-GILEAD-2012-0049904

PATIENT
  Sex: Male

DRUGS (4)
  1. NITRO                              /00003201/ [Concomitant]
     Indication: PAIN
  2. RANEXA [Suspect]
     Active Substance: RANOLAZINE
     Indication: PRODUCT USED FOR UNKNOWN INDICATION
     Dosage: 1000 MG, BID
     Dates: start: 201109
  3. RANEXA [Suspect]
     Active Substance: RANOLAZINE
     Dosage: 500 MG, UNK
  4. RANEXA [Suspect]
     Active Substance: RANOLAZINE
     Dosage: 500 MG, UNK

REACTIONS (2)
  - Loss of consciousness [Recovered/Resolved]
  - Dizziness [Recovered/Resolved]
